FAERS Safety Report 9280299 (Version 1)
Quarter: 2013Q2

REPORT INFORMATION
  Report Type: Spontaneous
  Country: US (occurrence: US)
  Receive Date: 20130509
  Receipt Date: 20130509
  Transmission Date: 20140414
  Serious: Yes (Other)
  Sender: FDA-Public Use
  Company Number: US-OTSUKA-US-2013-10813

PATIENT
  Age: 46 Year
  Sex: Female

DRUGS (11)
  1. SAMSCA [Suspect]
     Indication: CONGENITAL CYSTIC KIDNEY DISEASE
     Dosage: 15MG Q AM AND 30MG Q PM
     Dates: start: 2011, end: 20130425
  2. COZAAR [Concomitant]
     Dosage: 100 MG MILLIGRAM(S), QD
  3. LABETALOL [Concomitant]
     Dosage: 100 MG MILLIGRAM(S), BID
  4. SINGULAIR [Concomitant]
     Dosage: 10 MG MILLIGRAM(S), HS
  5. ALBUTEROL [Concomitant]
     Dosage: UNK, Q4HR PRN
  6. ALBUTEROL [Concomitant]
     Dosage: 2 PUFFS Q4HR PRN
  7. SYMBICORT [Concomitant]
     Dosage: 160/40 BID
  8. PREVACID [Concomitant]
     Dosage: 15 MG MILLIGRAM(S), QD
  9. ZOCOR [Concomitant]
     Dosage: 20 MG MILLIGRAM(S), HS
  10. FISH OIL [Concomitant]
     Dosage: 1 UNK, QD
     Route: 048
  11. VITAMIN D [Concomitant]
     Dosage: 50000 IU, QW

REACTIONS (5)
  - Alveolitis allergic [Recovered/Resolved]
  - CD4 lymphocytes increased [Unknown]
  - CD8 lymphocytes increased [Unknown]
  - Blood creatinine increased [None]
  - Renal failure [None]
